FAERS Safety Report 4777124-2 (Version None)
Quarter: 2005Q3

REPORT INFORMATION
  Report Type: 
  Country: None (occurrence: None)
  Receive Date: 20050915
  Receipt Date: 20050906
  Transmission Date: 20060218
  Serious: Yes (Hospitalization)
  Sender: FDA-Public Use
  Company Number: 2005-06-1775

PATIENT
  Age: 19 Year
  Sex: Male

DRUGS (2)
  1. LORATADINE [Suspect]
     Dosage: 10MG ORAL
     Route: 048
     Dates: end: 20050623
  2. .................. [Concomitant]

REACTIONS (2)
  - CONVULSION [None]
  - LOSS OF CONSCIOUSNESS [None]
